FAERS Safety Report 6762378-3 (Version None)
Quarter: 2010Q2

REPORT INFORMATION
  Report Type: 
  Country: None (occurrence: None)
  Receive Date: 20100609
  Receipt Date: 20100602
  Transmission Date: 20101027
  Serious: Yes (Other)
  Sender: FDA-Public Use
  Company Number: US-SANOFI-AVENTIS-2010SA026490

PATIENT
  Age: 65 Year
  Sex: Female
  Weight: 60.03 kg

DRUGS (4)
  1. LANTUS [Suspect]
     Dosage: DOSE:65 UNIT(S)
     Route: 058
  2. OPTICLICK [Suspect]
  3. NOVOLOG [Concomitant]
  4. LISINOPRIL [Concomitant]
     Dates: end: 20080101

REACTIONS (2)
  - DIABETIC RETINOPATHY [None]
  - EYE HAEMORRHAGE [None]
